FAERS Safety Report 9524689 (Version 2)
Quarter: 2013Q3

REPORT INFORMATION
  Report Type: Spontaneous
  Country: JP (occurrence: JP)
  Receive Date: 20130916
  Receipt Date: 20130916
  Transmission Date: 20140515
  Serious: Yes (Death, Other)
  Sender: FDA-Public Use
  Company Number: PHHY2011JP102270

PATIENT
  Age: 79 Year
  Sex: Female

DRUGS (3)
  1. TASIGNA [Suspect]
     Indication: CHRONIC MYELOID LEUKAEMIA
     Dosage: 600 MG/DAILY
     Route: 048
     Dates: start: 20110610
  2. TASIGNA [Suspect]
     Dosage: 400 MG, QD
     Route: 048
  3. INFLUENZA VIRUS VACC SEASONAL INN [Suspect]
     Indication: IMMUNISATION
     Dosage: 1 DF

REACTIONS (4)
  - Pneumonia aspiration [Fatal]
  - Cardiac failure congestive [Recovered/Resolved]
  - Right ventricular failure [Recovered/Resolved]
  - Nausea [Recovered/Resolved]
